FAERS Safety Report 18583182 (Version 3)
Quarter: 2020Q4

REPORT INFORMATION
  Report Type: Report from Study
  Country: MX (occurrence: MX)
  Receive Date: 20201206
  Receipt Date: 20201226
  Transmission Date: 20210114
  Serious: Yes (Other)
  Sender: FDA-Public Use
  Company Number: NVSC2020MX323337

PATIENT
  Age: 55 Year
  Sex: Female
  Weight: 72 kg

DRUGS (2)
  1. ENTRESTO [Suspect]
     Active Substance: SACUBITRIL\VALSARTAN
     Indication: CARDIAC FAILURE
     Dosage: 50 MG, BID
     Route: 048
     Dates: start: 202010
  2. ENTRESTO [Suspect]
     Active Substance: SACUBITRIL\VALSARTAN
     Dosage: 1.5 DF OF 50 MG, BID
     Route: 048

REACTIONS (9)
  - Feeling abnormal [Unknown]
  - Product prescribing error [Unknown]
  - Coronary artery disease [Recovering/Resolving]
  - Cardiac failure [Recovering/Resolving]
  - Hypotension [Unknown]
  - Tachycardia [Recovering/Resolving]
  - Wrong technique in product usage process [Unknown]
  - Anxiety [Recovering/Resolving]
  - Pain in extremity [Recovering/Resolving]

NARRATIVE: CASE EVENT DATE: 20201123
